FAERS Safety Report 11040188 (Version 1)
Quarter: 2015Q2

REPORT INFORMATION
  Report Type: Report from Study
  Country: CA (occurrence: CA)
  Receive Date: 20150416
  Receipt Date: 20150416
  Transmission Date: 20150821
  Serious: Yes (Hospitalization, Other)
  Sender: FDA-Public Use
  Company Number: CA-ABBVIE-15K-028-1374496-00

PATIENT
  Sex: Female
  Weight: 114.86 kg

DRUGS (1)
  1. HUMIRA [Suspect]
     Active Substance: ADALIMUMAB
     Indication: PSORIASIS
     Route: 058
     Dates: start: 20130625, end: 201409

REACTIONS (4)
  - Cholelithiasis [Recovered/Resolved]
  - Immune system disorder [Recovered/Resolved]
  - Diverticulitis [Not Recovered/Not Resolved]
  - Hernia [Unknown]
